FAERS Safety Report 16995006 (Version 1)
Quarter: 2019Q4

REPORT INFORMATION
  Report Type: Report from Study
  Country: US (occurrence: US)
  Receive Date: 20191105
  Receipt Date: 20191105
  Transmission Date: 20200122
  Serious: Yes (Hospitalization, Other)
  Sender: FDA-Public Use
  Company Number: PHHY2018US160283

PATIENT
  Age: 45 Year
  Sex: Female
  Weight: 64.1 kg

DRUGS (18)
  1. INSULIN ASPART [Concomitant]
     Active Substance: INSULIN ASPART
     Indication: PRODUCT USED FOR UNKNOWN INDICATION
     Dosage: AS DIRECTED
     Route: 065
     Dates: start: 20180622
  2. CEFOXITIN [Concomitant]
     Active Substance: CEFOXITIN SODIUM
     Indication: MYCOBACTERIUM ABSCESSUS INFECTION
     Dosage: 4 G, BID
     Route: 042
     Dates: start: 20180807
  3. BACTRIM DS [Concomitant]
     Active Substance: SULFAMETHOXAZOLE\TRIMETHOPRIM
     Indication: PRODUCT USED FOR UNKNOWN INDICATION
     Dosage: 1 DF, TIW
     Route: 048
     Dates: start: 20180622
  4. POSACONAZOLE [Concomitant]
     Active Substance: POSACONAZOLE
     Indication: ASPERGILLUS INFECTION
     Dosage: 300 MG, QD
     Route: 048
     Dates: start: 20181206
  5. BACTRIM [Concomitant]
     Active Substance: SULFAMETHOXAZOLE\TRIMETHOPRIM
     Indication: LUNG TRANSPLANT
     Dosage: UNK UNK, BID
     Route: 048
     Dates: start: 20180622
  6. CELLCEPT [Concomitant]
     Active Substance: MYCOPHENOLATE MOFETIL\MYCOPHENOLATE MOFETIL HYDROCHLORIDE
     Indication: LUNG TRANSPLANT
     Dosage: 750 MG, BID
     Route: 048
     Dates: start: 20180622
  7. FERROUS SULFATE. [Concomitant]
     Active Substance: FERROUS SULFATE
     Indication: PRODUCT USED FOR UNKNOWN INDICATION
     Dosage: 325 MG, BID
     Route: 048
     Dates: start: 20180622
  8. TACROLIMUS. [Concomitant]
     Active Substance: TACROLIMUS
     Indication: MYCOBACTERIUM ABSCESSUS INFECTION
     Dosage: UNK UNK, BID (3 MG AM/2.5 MG PM)
     Route: 048
     Dates: start: 20180622
  9. LASIX [Concomitant]
     Active Substance: FUROSEMIDE
     Indication: LUNG TRANSPLANT
     Dosage: 1 DF, QD
     Route: 065
     Dates: start: 20180414
  10. ACIPHEX [Concomitant]
     Active Substance: RABEPRAZOLE SODIUM
     Indication: PRODUCT USED FOR UNKNOWN INDICATION
     Dosage: 20 MG, BID
     Route: 048
     Dates: start: 20180622
  11. VALGANCICLOVIR. [Concomitant]
     Active Substance: VALGANCICLOVIR
     Indication: LUNG TRANSPLANT
     Dosage: 450 MG, QD
     Route: 048
     Dates: start: 20180622
  12. LAMPRENE [Suspect]
     Active Substance: CLOFAZIMINE
     Dosage: 50 MG, QD
     Route: 048
     Dates: start: 20190307
  13. GABAPENTIN. [Concomitant]
     Active Substance: GABAPENTIN
     Indication: PRODUCT USED FOR UNKNOWN INDICATION
     Dosage: 200 MG, QD (AM)
     Route: 048
     Dates: start: 20180622
  14. ITRACONAZOLE. [Concomitant]
     Active Substance: ITRACONAZOLE
     Indication: PRODUCT USED FOR UNKNOWN INDICATION
     Dosage: 100 MG, BID
     Route: 048
     Dates: start: 20180622
  15. PREDNISONE. [Concomitant]
     Active Substance: PREDNISONE
     Indication: LUNG TRANSPLANT
     Dosage: 5 MG, BID
     Route: 048
     Dates: start: 20180622
  16. LAMPRENE [Suspect]
     Active Substance: CLOFAZIMINE
     Indication: MYCOBACTERIUM ABSCESSUS INFECTION
     Dosage: 100 MG, QD
     Route: 048
     Dates: start: 20180917, end: 20190306
  17. AMIKACIN. [Concomitant]
     Active Substance: AMIKACIN
     Indication: PRODUCT USED FOR UNKNOWN INDICATION
     Dosage: 600 MG, TIW
     Route: 042
     Dates: start: 20180807
  18. MYCOPHENOLATE [Concomitant]
     Active Substance: MYCOPHENOLIC ACID
     Indication: PRODUCT USED FOR UNKNOWN INDICATION
     Dosage: 250 MG, BID
     Route: 048
     Dates: start: 20180622

REACTIONS (20)
  - Impaired gastric emptying [Recovered/Resolved]
  - Oedema peripheral [Recovering/Resolving]
  - Diarrhoea [Unknown]
  - Acute kidney injury [Recovered/Resolved]
  - Fluid overload [Recovered/Resolved]
  - Dry eye [Unknown]
  - Eye irritation [Not Recovered/Not Resolved]
  - Lymphadenopathy [Unknown]
  - Hyperkalaemia [Unknown]
  - Sinusitis [Unknown]
  - Hypoglycaemia [Recovering/Resolving]
  - Skin hyperpigmentation [Unknown]
  - Anxiety [Unknown]
  - Swelling [Recovering/Resolving]
  - Tinnitus [Unknown]
  - Acute kidney injury [Recovering/Resolving]
  - Acute kidney injury [Recovered/Resolved]
  - Transaminases increased [Not Recovered/Not Resolved]
  - Transplant rejection [Recovered/Resolved]
  - Tricuspid valve incompetence [Unknown]

NARRATIVE: CASE EVENT DATE: 20181012
